FAERS Safety Report 10207307 (Version 1)
Quarter: 2014Q2

REPORT INFORMATION
  Report Type: Spontaneous
  Country: US (occurrence: None)
  Receive Date: 20140529
  Receipt Date: 20140529
  Transmission Date: 20141212
  Serious: Yes (Other)
  Sender: FDA-Public Use
  Company Number: None

PATIENT
  Age: 20 Year
  Sex: Male
  Weight: 81.65 kg

DRUGS (1)
  1. MEFLOQUINE [Suspect]
     Indication: MALARIA PROPHYLAXIS
     Dosage: ONE PILL ONCE A WEEK TAKEN BY MOUTH
     Route: 048
     Dates: start: 20021101, end: 20140501

REACTIONS (5)
  - Abnormal dreams [None]
  - Tinnitus [None]
  - Depression [None]
  - Anxiety [None]
  - Post-traumatic stress disorder [None]
